FAERS Safety Report 4471558-1 (Version None)
Quarter: 2004Q4

REPORT INFORMATION
  Report Type: 
  Country: None (occurrence: None)
  Receive Date: 20041012
  Receipt Date: 20040920
  Transmission Date: 20050328
  Serious: No
  Sender: FDA-Public Use
  Company Number: US-GLAXOSMITHKLINE-A0526567A

PATIENT
  Age: 7 Year
  Sex: Female
  Weight: 31.8 kg

DRUGS (3)
  1. ADVAIR DISKUS 100/50 [Suspect]
     Indication: ASTHMA
     Dosage: 1PUFF TWICE PER DAY
     Route: 055
     Dates: start: 20040902, end: 20040915
  2. ALLEGRA [Concomitant]
     Dosage: 30MG TWICE PER DAY
  3. RHINOCORT [Concomitant]
     Dosage: 1SPR PER DAY
     Route: 045

REACTIONS (4)
  - DISTURBANCE IN ATTENTION [None]
  - INDIFFERENCE [None]
  - STARING [None]
  - TRANCE [None]
